FAERS Safety Report 20804292 (Version 1)
Quarter: 2022Q2

REPORT INFORMATION
  Report Type: Spontaneous
  Country: US (occurrence: US)
  Receive Date: 20220509
  Receipt Date: 20220509
  Transmission Date: 20220721
  Serious: No
  Sender: FDA-Public Use
  Company Number: US-PFIZER INC-202200668694

PATIENT
  Age: 68 Year
  Sex: Female
  Weight: 79.83 kg

DRUGS (1)
  1. PAXLOVID [Suspect]
     Active Substance: NIRMATRELVIR\RITONAVIR
     Indication: COVID-19
     Dosage: STANDARD DOSE
     Dates: start: 20220503, end: 20220505

REACTIONS (3)
  - Vomiting [Not Recovered/Not Resolved]
  - Malaise [Unknown]
  - Incorrect product administration duration [Unknown]

NARRATIVE: CASE EVENT DATE: 20220504
